FAERS Safety Report 7730742-1 (Version None)
Quarter: 2011Q3

REPORT INFORMATION
  Report Type: 
  Country: None (occurrence: None)
  Receive Date: 20110906
  Receipt Date: 20110824
  Transmission Date: 20111222
  Serious: Yes (Hospitalization)
  Sender: FDA-Public Use
  Company Number: JP-GLAXOSMITHKLINE-B0742463A

PATIENT
  Sex: Male
  Weight: 82 kg

DRUGS (7)
  1. ABILIFY [Concomitant]
     Dosage: 9MG PER DAY
     Route: 048
  2. VALPROATE SODIUM [Concomitant]
     Route: 048
  3. CLONAZEPAM [Concomitant]
     Dosage: 2MG PER DAY
     Route: 048
  4. DEPAS [Concomitant]
     Route: 048
  5. LAMICTAL [Suspect]
     Indication: BIPOLAR I DISORDER
     Dosage: 25MG ALTERNATE DAYS
     Route: 048
     Dates: start: 20110716, end: 20110805
  6. VALERIAN [Suspect]
     Dosage: 1200MG PER DAY
     Route: 048
     Dates: start: 20050101
  7. ARTANE [Concomitant]
     Route: 048

REACTIONS (7)
  - CIRCULATORY COLLAPSE [None]
  - DERMATITIS EXFOLIATIVE [None]
  - VIRAL INFECTION [None]
  - PYREXIA [None]
  - DRUG RASH WITH EOSINOPHILIA AND SYSTEMIC SYMPTOMS [None]
  - GENERALISED ERYTHEMA [None]
  - HEPATIC FUNCTION ABNORMAL [None]
